FAERS Safety Report 13271328 (Version 2)
Quarter: 2017Q1

REPORT INFORMATION
  Report Type: Spontaneous
  Country: FR (occurrence: FR)
  Receive Date: 20170226
  Receipt Date: 20170302
  Transmission Date: 20170428
  Serious: Yes (Hospitalization)
  Sender: FDA-Public Use
  Company Number: FR-BEH-2017078347

PATIENT
  Age: 70 Year
  Sex: Male

DRUGS (16)
  1. PRIVIGEN [Suspect]
     Active Substance: HUMAN IMMUNOGLOBULIN G
     Indication: LIMBIC ENCEPHALITIS
     Dosage: UNK
     Route: 042
     Dates: start: 20161116, end: 20161120
  2. XELEVIA [Concomitant]
     Active Substance: SITAGLIPTIN PHOSPHATE
     Route: 065
  3. PHYSIOTENS [Concomitant]
     Active Substance: MOXONIDINE
     Route: 065
  4. PRIVIGEN [Suspect]
     Active Substance: HUMAN IMMUNOGLOBULIN G
     Dosage: UNK
     Route: 042
  5. NEBILOX [Concomitant]
     Active Substance: NEBIVOLOL HYDROCHLORIDE
     Route: 065
  6. PRIVIGEN [Suspect]
     Active Substance: HUMAN IMMUNOGLOBULIN G
     Dosage: UNK
     Route: 042
     Dates: start: 20161213, end: 20161217
  7. TEGRETOL [Suspect]
     Active Substance: CARBAMAZEPINE
     Dosage: UNK
     Route: 065
     Dates: start: 201609, end: 201611
  8. AVODART [Concomitant]
     Active Substance: DUTASTERIDE
     Route: 065
  9. TEGRETOL [Suspect]
     Active Substance: CARBAMAZEPINE
     Dosage: 200 MG, TID
     Route: 065
     Dates: start: 201611, end: 20170113
  10. GLIBENCLAMIDE [Concomitant]
     Active Substance: GLYBURIDE
     Route: 065
  11. OGAST [Concomitant]
     Active Substance: LANSOPRAZOLE
     Route: 065
  12. ROSUVASTATIN. [Concomitant]
     Active Substance: ROSUVASTATIN
     Route: 065
  13. STAGID [Concomitant]
     Active Substance: METFORMIN PAMOATE
     Route: 065
  14. INDAPAMIDE. [Concomitant]
     Active Substance: INDAPAMIDE
     Route: 065
  15. KARDEGIC [Concomitant]
     Active Substance: ASPIRIN LYSINE
     Route: 048
  16. PERINDOPRIL [Concomitant]
     Active Substance: PERINDOPRIL
     Route: 065

REACTIONS (7)
  - Skin lesion [Recovering/Resolving]
  - Rash pustular [Recovering/Resolving]
  - Skin oedema [Recovering/Resolving]
  - Acute generalised exanthematous pustulosis [Recovering/Resolving]
  - Pruritus generalised [Recovering/Resolving]
  - Rash papular [Recovering/Resolving]
  - Dermatitis exfoliative [Recovering/Resolving]

NARRATIVE: CASE EVENT DATE: 20170120
